FAERS Safety Report 7371636-3 (Version None)
Quarter: 2011Q1

REPORT INFORMATION
  Report Type: 
  Country: None (occurrence: None)
  Receive Date: 20110316
  Receipt Date: 20110301
  Transmission Date: 20110831
  Serious: Yes (Other)
  Sender: FDA-Public Use
  Company Number: 2011MA002147

PATIENT
  Age: 76 Year
  Sex: Female

DRUGS (20)
  1. ZOPICLONE [Concomitant]
  2. CALCICHEW D3 [Concomitant]
  3. VERAPAMIL [Concomitant]
  4. TIOTROPIUM [Concomitant]
  5. VALSARTAN [Concomitant]
  6. TRAVOPROST [Concomitant]
  7. SPIRONOLACTONE [Suspect]
     Dates: start: 20110218
  8. LOFEPRAMINE [Concomitant]
  9. FUROSEMIDE [Concomitant]
  10. SALBUTAMOL [Concomitant]
  11. SENNA [Concomitant]
  12. SALMETEROL [Concomitant]
  13. GLYCEROL 2.6% [Concomitant]
  14. OLANZAPTNE [Concomitant]
  15. DEPO-MEDROL [Concomitant]
  16. MACROGOL [Concomitant]
  17. BETAMETHASONE [Concomitant]
  18. BROMIDE [Concomitant]
  19. ACETAMINOPHEN AND CODEINE PHOSPHATE [Concomitant]
  20. PILOCARPINE [Concomitant]

REACTIONS (1)
  - GLOMERULAR FILTRATION RATE DECREASED [None]
